FAERS Safety Report 9166504 (Version 9)
Quarter: 2013Q4

REPORT INFORMATION
  Report Type: Spontaneous
  Country: JP (occurrence: JP)
  Receive Date: 20130315
  Receipt Date: 20131220
  Transmission Date: 20140711
  Serious: Yes (Hospitalization)
  Sender: FDA-Public Use
  Company Number: JP-CELGENEUS-087-21880-13031176

PATIENT
  Age: 80 Year
  Sex: Male
  Weight: 73 kg

DRUGS (35)
  1. REVLIMID [Suspect]
     Indication: PLASMA CELL MYELOMA
     Dosage: 10 MILLIGRAM
     Route: 048
     Dates: start: 20120919
  2. REVLIMID [Suspect]
     Dosage: 10 MILLIGRAM
     Route: 048
     Dates: end: 20130227
  3. REVLIMID [Suspect]
     Route: 048
     Dates: start: 20130321
  4. LENADEX [Suspect]
     Indication: PLASMA CELL MYELOMA
     Dosage: 40 MILLIGRAM
     Route: 048
     Dates: start: 20130228
  5. LENADEX [Suspect]
     Dosage: 40 MILLIGRAM
     Route: 048
     Dates: start: 20120918
  6. DEXAMETHASONE [Suspect]
     Indication: PLASMA CELL MYELOMA
     Dosage: 8 MILLIGRAM
     Route: 041
     Dates: start: 20120919
  7. ELOTUZUMAB [Suspect]
     Indication: PLASMA CELL MYELOMA
     Route: 041
     Dates: start: 20120919
  8. LANOCONAZOLE [Concomitant]
     Indication: ADVERSE EVENT
     Route: 065
     Dates: start: 20130304, end: 20130825
  9. NEW LECICARBON [Concomitant]
     Indication: ADVERSE EVENT
     Route: 065
     Dates: start: 20121227, end: 20121227
  10. INFLUENZA [Concomitant]
     Indication: ADVERSE EVENT
     Route: 065
     Dates: start: 20121128, end: 20121128
  11. SENNOSIDE A-B CALCIUM [Concomitant]
     Indication: ADVERSE EVENT
     Route: 065
     Dates: start: 20120923
  12. ACICLOVIR [Concomitant]
     Indication: PRODUCT USED FOR UNKNOWN INDICATION
     Route: 065
     Dates: start: 20120919
  13. ENTECAVIR HYDRATE [Concomitant]
     Indication: PRODUCT USED FOR UNKNOWN INDICATION
     Route: 065
     Dates: start: 20120919
  14. SULFAMETHOXAZOLE [Concomitant]
     Indication: PRODUCT USED FOR UNKNOWN INDICATION
     Route: 065
     Dates: start: 20120919
  15. ASA [Concomitant]
     Indication: PRODUCT USED FOR UNKNOWN INDICATION
     Route: 065
     Dates: start: 20120919
  16. FELBINAC [Concomitant]
     Indication: PRODUCT USED FOR UNKNOWN INDICATION
     Route: 065
     Dates: start: 20110822
  17. BUFORMIN HYDROCHLORIDE [Concomitant]
     Indication: PRODUCT USED FOR UNKNOWN INDICATION
     Route: 065
     Dates: start: 20110425, end: 20130626
  18. BIO-THREE [Concomitant]
     Indication: PRODUCT USED FOR UNKNOWN INDICATION
     Route: 065
     Dates: start: 20090623, end: 20130626
  19. REBAMIPIDE [Concomitant]
     Indication: PRODUCT USED FOR UNKNOWN INDICATION
     Route: 065
     Dates: start: 20090522
  20. FAMOTIDINE [Concomitant]
     Indication: PRODUCT USED FOR UNKNOWN INDICATION
     Route: 065
     Dates: start: 20090522
  21. ALOGLIPTIN BENZOATE [Concomitant]
     Indication: PRODUCT USED FOR UNKNOWN INDICATION
     Route: 065
     Dates: start: 20111017, end: 20130626
  22. GLIMEPIRIDE [Concomitant]
     Indication: PRODUCT USED FOR UNKNOWN INDICATION
     Route: 065
     Dates: start: 20111017, end: 20130626
  23. BFLUID [Concomitant]
     Indication: ADVERSE EVENT
     Route: 041
     Dates: start: 20130404, end: 20130408
  24. BFLUID [Concomitant]
     Route: 065
     Dates: start: 20130626, end: 20130723
  25. DORIPENEM HYDRATE [Concomitant]
     Indication: ADVERSE EVENT
     Route: 065
     Dates: start: 20130331, end: 20130409
  26. NEO-MINOPHAGEN C [Concomitant]
     Indication: ADVERSE EVENT
     Route: 065
     Dates: start: 20130409, end: 20130415
  27. MAGNESIUM OXIDE [Concomitant]
     Indication: ADVERSE EVENT
     Route: 065
     Dates: start: 20130312
  28. URSODEOXYCHOLIC ACID [Concomitant]
     Indication: ADVERSE EVENT
     Route: 065
     Dates: start: 20130415, end: 20130626
  29. SILODOSIN [Concomitant]
     Indication: ADVERSE EVENT
     Dosage: 8 MILLIGRAM
     Route: 048
     Dates: start: 20130304, end: 20130710
  30. LIRANAFTATE [Concomitant]
     Indication: ADVERSE EVENT
     Route: 065
     Dates: start: 20130430
  31. MIRTAZAPINE [Concomitant]
     Indication: ADVERSE EVENT
     Route: 065
     Dates: start: 20130530, end: 20130530
  32. BIAPENEM [Concomitant]
     Indication: ADVERSE EVENT
     Route: 065
     Dates: start: 20130704, end: 20130708
  33. CADEX OINTMMENT [Concomitant]
     Indication: ADVERSE EVENT
     Route: 065
     Dates: start: 20130704, end: 20130825
  34. DIMETHYL ISOPROPYLAZULENE [Concomitant]
     Indication: ADVERSE EVENT
     Route: 065
     Dates: start: 20130731, end: 20130825
  35. RISPERIDONE [Concomitant]
     Indication: ADVERSE EVENT
     Route: 065
     Dates: start: 20130817, end: 20130817

REACTIONS (7)
  - Urinary retention [Not Recovered/Not Resolved]
  - Platelet count decreased [Recovered/Resolved]
  - Malaise [Recovered/Resolved]
  - Hypoaesthesia [Recovered/Resolved]
  - Decreased appetite [Recovered/Resolved]
  - Malaise [Recovered/Resolved]
  - Hypoaesthesia [Not Recovered/Not Resolved]
